FAERS Safety Report 6024986-7 (Version None)
Quarter: 2008Q4

REPORT INFORMATION
  Report Type: 
  Country: None (occurrence: None)
  Receive Date: 20081224
  Receipt Date: 20081211
  Transmission Date: 20090506
  Serious: Yes (Death, Hospitalization)
  Sender: FDA-Public Use
  Company Number: POMP-1000411

PATIENT
  Age: 6 Month
  Sex: Male
  Weight: 6.5 kg

DRUGS (3)
  1. MYOZYME [Suspect]
     Indication: GLYCOGEN STORAGE DISEASE TYPE II
     Dosage: INTRAVENOUS
     Route: 042
     Dates: start: 20081111, end: 20081111
  2. ACETAMINOPHEN [Concomitant]
  3. METAMIZOLE (METAMIZOLE) [Concomitant]

REACTIONS (6)
  - BLOOD CREATINE PHOSPHOKINASE INCREASED [None]
  - BLOOD CULTURE POSITIVE [None]
  - DEMYELINATION [None]
  - DYSPHAGIA [None]
  - PNEUMONIA STREPTOCOCCAL [None]
  - POLYNEUROPATHY [None]
